FAERS Safety Report 21162191 (Version 1)
Quarter: 2022Q3

REPORT INFORMATION
  Report Type: Spontaneous
  Country: US (occurrence: US)
  Receive Date: 20220802
  Receipt Date: 20220802
  Transmission Date: 20221026
  Serious: Yes (Other)
  Sender: FDA-Public Use
  Company Number: US-ALLERGAN-2225243US

PATIENT
  Sex: Female

DRUGS (2)
  1. URSODIOL [Suspect]
     Active Substance: URSODIOL
     Indication: Primary biliary cholangitis
     Dosage: 13-15 MG/KG, QD
  2. FENOFIBRATE [Suspect]
     Active Substance: FENOFIBRATE
     Indication: Primary biliary cholangitis
     Dosage: 50-150 MG, QD

REACTIONS (1)
  - Hepatic cirrhosis [Unknown]
